FAERS Safety Report 9647910 (Version 1)
Quarter: 2013Q4

REPORT INFORMATION
  Report Type: Spontaneous
  Country: ES (occurrence: ES)
  Receive Date: 20131028
  Receipt Date: 20131028
  Transmission Date: 20140711
  Serious: Yes (Hospitalization, Other)
  Sender: FDA-Public Use
  Company Number: ES-UCBSA-101466

PATIENT
  Age: 6 Year
  Sex: Male

DRUGS (2)
  1. EQUASYM [Suspect]
     Indication: ATTENTION DEFICIT/HYPERACTIVITY DISORDER
     Route: 048
     Dates: start: 20130607, end: 20130707
  2. BENZNIDAZOLE [Suspect]
     Indication: AMERICAN TRYPANOSOMIASIS
     Route: 048
     Dates: start: 20130615, end: 20130714

REACTIONS (4)
  - Acute hepatic failure [Recovered/Resolved]
  - Photophobia [Recovering/Resolving]
  - Toxic skin eruption [Recovering/Resolving]
  - Pyrexia [Recovered/Resolved]
